FAERS Safety Report 7818412-2 (Version None)
Quarter: 2011Q4

REPORT INFORMATION
  Report Type: 
  Country: None (occurrence: None)
  Receive Date: 20111017
  Receipt Date: 20111011
  Transmission Date: 20120403
  Serious: Yes (Hospitalization)
  Sender: FDA-Public Use
  Company Number: CN-BAYER-2011-094015

PATIENT
  Age: 58 Year
  Sex: Male

DRUGS (2)
  1. AVELOX [Suspect]
     Indication: COUGH
     Dosage: 0.4 G, QD
     Route: 048
     Dates: start: 20101225
  2. AVELOX [Suspect]
     Indication: PRODUCTIVE COUGH
     Dosage: UNK
     Route: 048
     Dates: start: 20110109

REACTIONS (12)
  - CHEST DISCOMFORT [None]
  - PYREXIA [None]
  - ANAPHYLACTIC SHOCK [None]
  - ASTHENIA [None]
  - PETECHIAE [None]
  - CYANOSIS [None]
  - PALLOR [None]
  - PERIPHERAL COLDNESS [None]
  - TEMPERATURE INTOLERANCE [None]
  - MYALGIA [None]
  - PALPITATIONS [None]
  - TACHYPNOEA [None]
